FAERS Safety Report 4325167-5 (Version None)
Quarter: 2004Q1

REPORT INFORMATION
  Report Type: 
  Country: None (occurrence: None)
  Receive Date: 20040326
  Receipt Date: 20011008
  Transmission Date: 20041129
  Serious: Yes (Hospitalization, Other)
  Sender: FDA-Public Use
  Company Number: US-MERCK-01101310

PATIENT
  Age: 65 Year
  Sex: Male
  Weight: 95 kg

DRUGS (16)
  1. [THERAPY UNSPECIFIED] [Concomitant]
  2. ALBUTEROL [Concomitant]
     Route: 055
  3. ALBUTEROL [Concomitant]
     Route: 048
     Dates: start: 20010416
  4. ALLOPURINOL [Concomitant]
  5. ECOTRIN [Concomitant]
  6. ATENOLOL [Concomitant]
  7. PALGIC D [Concomitant]
     Route: 048
     Dates: start: 20010416
  8. CELEBREX [Concomitant]
     Dates: end: 20010425
  9. GUAIFENEX LA [Concomitant]
  10. HYDRODIURIL [Concomitant]
     Route: 048
  11. IBUPROFEN [Concomitant]
  12. ATROVENT [Concomitant]
  13. VIOXX [Suspect]
     Indication: SPONDYLOSIS
     Route: 048
     Dates: start: 20001001
  14. VIOXX [Suspect]
     Indication: INTERVERTEBRAL DISC DEGENERATION
     Route: 048
     Dates: start: 20001001
  15. MAVIK [Concomitant]
     Route: 048
     Dates: start: 20010416
  16. MAVIK [Concomitant]
     Route: 048

REACTIONS (18)
  - ANAEMIA [None]
  - BLADDER OBSTRUCTION [None]
  - CEREBRAL ATROPHY [None]
  - DIZZINESS [None]
  - ENCEPHALOMALACIA [None]
  - EPISTAXIS [None]
  - ERECTILE DYSFUNCTION [None]
  - GASTROINTESTINAL HAEMORRHAGE [None]
  - HAEMORRHOIDS [None]
  - HEADACHE [None]
  - ILEUS PARALYTIC [None]
  - INTERNATIONAL NORMALISED RATIO DECREASED [None]
  - LYMPHADENOPATHY [None]
  - PROSTATE CANCER [None]
  - RECTAL HAEMORRHAGE [None]
  - RECTAL POLYP [None]
  - SINUSITIS [None]
  - SPINAL COLUMN STENOSIS [None]
